FAERS Safety Report 9856425 (Version 2)
Quarter: 2014Q1

REPORT INFORMATION
  Report Type: Spontaneous
  Country: US (occurrence: US)
  Receive Date: 20140130
  Receipt Date: 20140324
  Transmission Date: 20141002
  Serious: No
  Sender: FDA-Public Use
  Company Number: US-009507513-1401USA010650

PATIENT
  Sex: Female

DRUGS (1)
  1. AFRIN [Suspect]
     Indication: SINUS DISORDER
     Dosage: UNK, UNKNOWN
     Route: 045

REACTIONS (2)
  - Accidental exposure to product [Unknown]
  - Product quality issue [Unknown]
